FAERS Safety Report 4080707 (Version 3)
Quarter: 2013Q3

REPORT INFORMATION
  Report Type: Report from Study
  Country: ES (occurrence: ES)
  Receive Date: 20040205
  Receipt Date: 20130920
  Transmission Date: 20140515
  Serious: Yes (Hospitalization)
  Sender: FDA-Public Use
  Company Number: PHHO2003ES07390

PATIENT
  Age: 66 Year
  Sex: Female

DRUGS (4)
  1. NEORAL [Suspect]
     Indication: LIVER TRANSPLANT
     Dosage: 600 MG,  CUMULATIVE DOSE
     Dates: start: 20020322, end: 20020326
  2. NEORAL [Suspect]
     Dosage: 20050 MG, MULATIVE DOSE
     Dates: start: 20020327, end: 20020702
  3. NEORAL [Suspect]
     Dates: start: 20020703
  4. AREDIA [Suspect]
     Indication: OSTEODYSTROPHY
     Dates: start: 20020327

REACTIONS (1)
  - Delirium [Recovered/Resolved]
